FAERS Safety Report 7901804-0 (Version None)
Quarter: 2011Q4

REPORT INFORMATION
  Report Type: 
  Country: None (occurrence: None)
  Receive Date: 20111108
  Receipt Date: 20111029
  Transmission Date: 20120403
  Serious: Yes (Other)
  Sender: FDA-Public Use
  Company Number: PHEH2011US08180

PATIENT
  Sex: Female

DRUGS (2)
  1. DIURETICS [Suspect]
  2. VIVELLE-DOT [Suspect]
     Indication: HORMONE REPLACEMENT THERAPY
     Route: 062

REACTIONS (4)
  - ARTHRALGIA [None]
  - CARPAL TUNNEL SYNDROME [None]
  - FLUID RETENTION [None]
  - WEIGHT INCREASED [None]
